FAERS Safety Report 9403003 (Version 1)
Quarter: 2013Q3

REPORT INFORMATION
  Report Type: Report from Study
  Country: DE (occurrence: DE)
  Receive Date: 20130716
  Receipt Date: 20130716
  Transmission Date: 20140515
  Serious: Yes (Disabling)
  Sender: FDA-Public Use
  Company Number: DE-BRISTOL-MYERS SQUIBB COMPANY-15355795

PATIENT
  Age: 68 Year
  Sex: Male
  Weight: 64 kg

DRUGS (3)
  1. CETUXIMAB [Suspect]
     Indication: NON-SMALL CELL LUNG CANCER
     Dosage: RECENT INF:14SEP2009?NO OF INF:7?STRENGTH:5MG/ML
     Route: 042
     Dates: start: 20090803
  2. CARBOPLATIN INJECTION [Suspect]
     Indication: NON-SMALL CELL LUNG CANCER
     Dosage: 1DF:6AUC,ON DAY 1 OF 21 DAYS CYCLE?RECENT INF:14SEP2009
     Route: 042
     Dates: start: 20090803
  3. PACLITAXEL [Suspect]
     Indication: NON-SMALL CELL LUNG CANCER
     Dosage: ON DAY 1 OF 21DAY CYCLE?RECENT INF:14SEP2009
     Route: 042
     Dates: start: 20090803

REACTIONS (1)
  - Hyperkalaemia [Not Recovered/Not Resolved]
